FAERS Safety Report 4388585-5 (Version None)
Quarter: 2004Q2

REPORT INFORMATION
  Report Type: 
  Country: None (occurrence: None)
  Receive Date: 20040624
  Receipt Date: 20040614
  Transmission Date: 20050107
  Serious: Yes (Death)
  Sender: FDA-Public Use
  Company Number: DSA_70294_2004

PATIENT
  Sex: Male

DRUGS (1)
  1. AZATHIOPRINE [Suspect]
     Indication: IMMUNOSUPPRESSION
     Dosage: 100 MG QDAY; PO
     Route: 048
     Dates: start: 19890101, end: 19991201

REACTIONS (2)
  - HAEMORRHAGE [None]
  - PANCYTOPENIA [None]
